FAERS Safety Report 10960268 (Version 1)
Quarter: 2015Q1

REPORT INFORMATION
  Report Type: Spontaneous
  Country: JP (occurrence: JP)
  Receive Date: 20150327
  Receipt Date: 20150327
  Transmission Date: 20150721
  Serious: Yes (Death, Hospitalization)
  Sender: FDA-Public Use
  Company Number: JP-JNJFOC-20150312511

PATIENT
  Age: 39 Year
  Sex: Male

DRUGS (9)
  1. XEPLION [Suspect]
     Active Substance: PALIPERIDONE PALMITATE
     Indication: PRODUCT USED FOR UNKNOWN INDICATION
     Route: 030
     Dates: start: 20141220, end: 20141220
  2. XEPLION [Suspect]
     Active Substance: PALIPERIDONE PALMITATE
     Indication: PRODUCT USED FOR UNKNOWN INDICATION
     Route: 030
     Dates: start: 20141115, end: 20141115
  3. SODIUM VALPROATE [Suspect]
     Active Substance: VALPROATE SODIUM
     Indication: ANXIETY
     Route: 048
     Dates: start: 20141104, end: 20141108
  4. SODIUM VALPROATE [Suspect]
     Active Substance: VALPROATE SODIUM
     Indication: ANXIETY
     Route: 048
     Dates: end: 20141103
  5. XEPLION [Suspect]
     Active Substance: PALIPERIDONE PALMITATE
     Indication: PRODUCT USED FOR UNKNOWN INDICATION
     Route: 030
     Dates: start: 20141122, end: 20141122
  6. SODIUM VALPROATE [Suspect]
     Active Substance: VALPROATE SODIUM
     Indication: ANXIETY
     Route: 048
     Dates: start: 20141109, end: 20150113
  7. TRAZODONE HYDROCHLORIDE. [Suspect]
     Active Substance: TRAZODONE HYDROCHLORIDE
     Indication: INSOMNIA
     Route: 048
     Dates: end: 20150113
  8. LANDSEN [Suspect]
     Active Substance: CLONAZEPAM
     Indication: IRRITABILITY
     Route: 048
     Dates: end: 20150113
  9. XEPLION [Suspect]
     Active Substance: PALIPERIDONE PALMITATE
     Indication: PRODUCT USED FOR UNKNOWN INDICATION
     Route: 030
     Dates: start: 20140315

REACTIONS (2)
  - Completed suicide [Fatal]
  - Suicidal ideation [Unknown]

NARRATIVE: CASE EVENT DATE: 20141018
